FAERS Safety Report 5872731-8 (Version None)
Quarter: 2008Q3

REPORT INFORMATION
  Report Type: 
  Country: None (occurrence: None)
  Receive Date: 20080902
  Receipt Date: 20060227
  Transmission Date: 20090109
  Serious: Yes (Hospitalization)
  Sender: FDA-Public Use
  Company Number: 2008AL009368

PATIENT
  Age: 16 Year
  Sex: Female

DRUGS (1)
  1. FEVERALL [Suspect]
     Dosage: 8000 MG; X1; PO
     Route: 048
     Dates: start: 20060122, end: 20060122

REACTIONS (5)
  - FLUSHING [None]
  - INTENTIONAL OVERDOSE [None]
  - LOCAL SWELLING [None]
  - PRURITUS [None]
  - SWELLING FACE [None]
